FAERS Safety Report 23457947 (Version 1)
Quarter: 2024Q1

REPORT INFORMATION
  Report Type: Spontaneous
  Country: US (occurrence: US)
  Receive Date: 20240130
  Receipt Date: 20240130
  Transmission Date: 20240410
  Serious: Yes (Hospitalization, Other)
  Sender: FDA-Public Use
  Company Number: US-FreseniusKabi-FK202401648

PATIENT
  Age: 8 Decade
  Sex: Female

DRUGS (2)
  1. PACLITAXEL [Suspect]
     Active Substance: PACLITAXEL
     Indication: Uterine cancer
     Dosage: TWO CYCLES
  2. CARBOPLATIN [Concomitant]
     Active Substance: CARBOPLATIN
     Indication: Uterine cancer

REACTIONS (1)
  - Myocarditis [Unknown]
